FAERS Safety Report 17279213 (Version 1)
Quarter: 2020Q1

REPORT INFORMATION
  Report Type: Spontaneous
  Country: FR (occurrence: FR)
  Receive Date: 20200116
  Receipt Date: 20200116
  Transmission Date: 20200409
  Serious: Yes (Death)
  Sender: FDA-Public Use
  Company Number: FR-PURDUE PHARMA-GBR-2020-0074345

PATIENT
  Age: 90 Year
  Sex: Female
  Weight: 28 kg

DRUGS (2)
  1. OXYCONTIN [Suspect]
     Active Substance: OXYCODONE HYDROCHLORIDE
     Indication: PAIN
     Dosage: 5 MG, UNK (TOTAL)
     Route: 048
     Dates: start: 20191216
  2. OXYNORMORO [Concomitant]
     Active Substance: OXYCODONE HYDROCHLORIDE
     Indication: PRODUCT USED FOR UNKNOWN INDICATION
     Dosage: (NON ADMINISTRE)UNK
     Route: 065

REACTIONS (3)
  - Medication error [Fatal]
  - Death [Fatal]
  - Wrong product administered [Fatal]

NARRATIVE: CASE EVENT DATE: 20191216
